FAERS Safety Report 18403222 (Version 2)
Quarter: 2020Q4

REPORT INFORMATION
  Report Type: Spontaneous
  Country: US (occurrence: US)
  Receive Date: 20201020
  Receipt Date: 20201118
  Transmission Date: 20210114
  Serious: No
  Sender: FDA-Public Use
  Company Number: US-ASTRAZENECA-2020SF24658

PATIENT
  Sex: Female

DRUGS (1)
  1. SYMBICORT [Suspect]
     Active Substance: BUDESONIDE\FORMOTEROL FUMARATE DIHYDRATE
     Dosage: 160/4.5 UG, ONE INHALATION, TWO TIMES A DAY
     Route: 055

REACTIONS (3)
  - Intentional product use issue [Not Recovered/Not Resolved]
  - Device failure [Unknown]
  - Macular degeneration [Unknown]
